FAERS Safety Report 24809128 (Version 1)
Quarter: 2025Q1

REPORT INFORMATION
  Report Type: Spontaneous
  Country: US (occurrence: US)
  Receive Date: 20250106
  Receipt Date: 20250106
  Transmission Date: 20250409
  Serious: No
  Sender: MACLEODS
  Company Number: US-MACLEODS PHARMA-MAC2024050881

PATIENT

DRUGS (1)
  1. TRIAMCINOLONE ACETONIDE [Suspect]
     Active Substance: TRIAMCINOLONE ACETONIDE
     Indication: Rash
     Dosage: NDC- 16714-986-03, 80 G
     Route: 061
     Dates: start: 202012

REACTIONS (2)
  - Product leakage [Unknown]
  - Product package associated injury [Unknown]

NARRATIVE: CASE EVENT DATE: 20241108
